FAERS Safety Report 13150598 (Version 1)
Quarter: 2017Q1

REPORT INFORMATION
  Report Type: Spontaneous
  Country: BR (occurrence: BR)
  Receive Date: 20170125
  Receipt Date: 20170125
  Transmission Date: 20170428
  Serious: Yes (Other)
  Sender: FDA-Public Use
  Company Number: BR-JNJFOC-20170120720

PATIENT
  Sex: Female

DRUGS (2)
  1. IMBRUVICA [Suspect]
     Active Substance: IBRUTINIB
     Indication: CHRONIC LYMPHOCYTIC LEUKAEMIA
     Route: 048
  2. MACRODANTIN [Concomitant]
     Active Substance: NITROFURANTOIN

REACTIONS (7)
  - Urinary tract infection [Unknown]
  - Depression [Unknown]
  - Skin discolouration [Unknown]
  - Tremor [Unknown]
  - Stomatitis [Unknown]
  - Tachycardia [Unknown]
  - Petechiae [Unknown]
